FAERS Safety Report 9575245 (Version 1)
Quarter: 2013Q4

REPORT INFORMATION
  Report Type: Report from Study
  Country: JP (occurrence: JP)
  Receive Date: 20131001
  Receipt Date: 20131001
  Transmission Date: 20140711
  Serious: Yes (Death, Life-Threatening)
  Sender: FDA-Public Use
  Company Number: JP-GLAXOSMITHKLINE-B0915298A

PATIENT
  Age: 60 Year
  Sex: Male

DRUGS (11)
  1. VOTRIENT 200MG [Suspect]
     Indication: SOFT TISSUE CANCER
     Dosage: 200MG PER DAY
     Route: 048
     Dates: start: 20130420, end: 20130425
  2. VOTRIENT 200MG [Suspect]
     Indication: SOFT TISSUE CANCER
     Dosage: 200MG PER DAY
     Route: 048
     Dates: start: 20130501, end: 20130507
  3. MAINTATE [Concomitant]
     Indication: HYPERTENSION
     Dosage: 2.5MG PER DAY
     Route: 048
     Dates: end: 20130510
  4. PARIET [Concomitant]
     Indication: GASTROOESOPHAGEAL REFLUX DISEASE
     Dosage: 10MG PER DAY
     Route: 048
     Dates: end: 20130510
  5. BERIZYM [Concomitant]
     Indication: GASTRITIS
     Dosage: 1G THREE TIMES PER DAY
     Route: 048
     Dates: end: 20130510
  6. VITAMEDIN [Concomitant]
     Indication: VITAMIN B COMPLEX DEFICIENCY
     Dosage: 1IUAX THREE TIMES PER DAY
     Route: 048
     Dates: start: 20130208, end: 20130510
  7. TRAVELMIN [Concomitant]
     Indication: VOMITING
     Dosage: 1IUAX THREE TIMES PER DAY
     Route: 048
     Dates: start: 20130325, end: 20130510
  8. LOXOPROFEN [Concomitant]
     Indication: PHANTOM PAIN
     Dosage: 60MG THREE TIMES PER DAY
     Route: 048
     Dates: end: 20130510
  9. REBAMIPIDE [Concomitant]
     Indication: GASTRITIS
     Dosage: 100MG THREE TIMES PER DAY
     Route: 048
     Dates: end: 20130510
  10. MAGMITT [Concomitant]
     Indication: CONSTIPATION
     Dosage: 330MG THREE TIMES PER DAY
     Route: 048
     Dates: end: 20130510
  11. SLOW-K [Concomitant]
     Dosage: 1200MG TWICE PER DAY
     Route: 048
     Dates: start: 20130426, end: 20130510

REACTIONS (4)
  - Gastrointestinal perforation [Not Recovered/Not Resolved]
  - Disseminated intravascular coagulation [Fatal]
  - Diarrhoea [Recovered/Resolved]
  - Vomiting [Recovered/Resolved]
